FAERS Safety Report 5904322-4 (Version None)
Quarter: 2008Q3

REPORT INFORMATION
  Report Type: 
  Country: None (occurrence: None)
  Receive Date: 20080930
  Receipt Date: 20080930
  Transmission Date: 20090109
  Serious: Yes (Hospitalization)
  Sender: FDA-Public Use
  Company Number: None

PATIENT
  Sex: Female
  Weight: 86 kg

DRUGS (1)
  1. PHENERGAN [Suspect]
     Indication: NAUSEA
     Dosage: 12.5MG X 1 DOSE IV, 1 DOSE ONLY
     Route: 042
     Dates: start: 20080715, end: 20080715

REACTIONS (8)
  - AGITATION [None]
  - CONFUSIONAL STATE [None]
  - DISORIENTATION [None]
  - INJECTION SITE IRRITATION [None]
  - MOANING [None]
  - MUSCLE TWITCHING [None]
  - PARAESTHESIA [None]
  - SPEECH DISORDER [None]
